FAERS Safety Report 5733786-4 (Version None)
Quarter: 2008Q2

REPORT INFORMATION
  Report Type: 
  Country: None (occurrence: None)
  Receive Date: 20080509
  Receipt Date: 20080430
  Transmission Date: 20081010
  Serious: Yes (Death, Hospitalization, Other)
  Sender: FDA-Public Use
  Company Number: JP-PFIZER INC-2008026959

PATIENT
  Age: 57 Year
  Sex: Female

DRUGS (5)
  1. DIFLUCAN [Suspect]
     Indication: FUNGAL INFECTION
     Route: 048
     Dates: start: 20080310, end: 20080318
  2. PREDONINE [Concomitant]
     Route: 048
  3. ASPARA [Concomitant]
     Route: 048
  4. MUCODYNE [Concomitant]
     Route: 048
  5. LEVOFLOXACIN [Concomitant]
     Route: 048

REACTIONS (2)
  - DELIRIUM [None]
  - RESPIRATORY FAILURE [None]
